FAERS Safety Report 8406329-4 (Version None)
Quarter: 2012Q2

REPORT INFORMATION
  Report Type: 
  Country: None (occurrence: None)
  Receive Date: 20120604
  Receipt Date: 20120531
  Transmission Date: 20120825
  Serious: Yes (Death)
  Sender: FDA-Public Use
  Company Number: PHHY2012CN046996

PATIENT

DRUGS (7)
  1. METHYLPREDNISOLONE [Concomitant]
     Dosage: 8 MG, UNK
     Route: 048
  2. BASILIXIMAB [Suspect]
     Indication: LIVER TRANSPLANT
     Dosage: 20 MG, UNK
  3. METHYLPREDNISOLONE [Concomitant]
     Dosage: 4 MG/DAY
     Route: 048
  4. METHYLPREDNISOLONE [Concomitant]
     Dosage: 48 MG, UNK
     Route: 048
  5. METHYLPREDNISOLONE [Concomitant]
     Indication: LIVER TRANSPLANT
     Dosage: 240 MG, UNK
     Route: 042
  6. TACROLIMUS [Concomitant]
     Indication: LIVER TRANSPLANT
     Dosage: 0.04 MG/KG/DAY
  7. METHYLPREDNISOLONE [Concomitant]
     Dosage: 10 MG, UNK
     Route: 042

REACTIONS (3)
  - HEPATIC FAILURE [None]
  - BILE DUCT NECROSIS [None]
  - BILIARY ISCHAEMIA [None]
